FAERS Safety Report 9564212 (Version 1)
Quarter: 2013Q3

REPORT INFORMATION
  Report Type: Report from Study
  Country: US (occurrence: US)
  Receive Date: 20130930
  Receipt Date: 20130930
  Transmission Date: 20140515
  Serious: Yes (Hospitalization)
  Sender: FDA-Public Use
  Company Number: US-ROCHE-1279860

PATIENT
  Sex: Female

DRUGS (10)
  1. HERCEPTIN [Suspect]
     Indication: HER-2 POSITIVE BREAST CANCER
     Route: 065
  2. XELODA [Suspect]
     Indication: HER-2 POSITIVE BREAST CANCER
     Route: 065
  3. AMBIEN [Suspect]
     Indication: HER-2 POSITIVE BREAST CANCER
     Route: 065
  4. TAXOL [Concomitant]
  5. LAPATINIB [Concomitant]
  6. ABRAXANE [Concomitant]
  7. NAVELBINE [Concomitant]
  8. TAXOTERE [Concomitant]
  9. MS CONTIN [Concomitant]
  10. MSIR [Concomitant]

REACTIONS (11)
  - Lethargy [Unknown]
  - Disease progression [Unknown]
  - Skin discolouration [Unknown]
  - Oral pain [Unknown]
  - Weight decreased [Unknown]
  - Dizziness [Unknown]
  - Dementia [Unknown]
  - Confusional state [Unknown]
  - Somnambulism [Unknown]
  - Insomnia [Unknown]
  - VIIth nerve paralysis [Unknown]
